FAERS Safety Report 14235048 (Version 2)
Quarter: 2017Q4

REPORT INFORMATION
  Report Type: Spontaneous
  Country: GB (occurrence: GB)
  Receive Date: 20171129
  Receipt Date: 20171219
  Transmission Date: 20180321
  Serious: Yes (Other)
  Sender: FDA-Public Use
  Company Number: GB-OTSUKA-EU-2014-10223

PATIENT
  Sex: Male

DRUGS (3)
  1. ABILIFY [Suspect]
     Active Substance: ARIPIPRAZOLE
     Indication: SCHIZOPHRENIA
     Dosage: SWITCHED TO ABILIFY INJECTION:03-APR-14
     Route: 048
  2. ABILIFY MAINTENA [Suspect]
     Active Substance: ARIPIPRAZOLE
     Indication: SCHIZOPHRENIA
     Dosage: 400 MG, QMO
     Route: 065
     Dates: start: 20140403
  3. ABILIFY [Suspect]
     Active Substance: ARIPIPRAZOLE
     Dosage: SWITCHED TO ABILIFY INJECTION:03-APR-14
     Route: 048

REACTIONS (2)
  - Psychotic behaviour [Unknown]
  - Drug ineffective [Unknown]
